FAERS Safety Report 8177670-8 (Version None)
Quarter: 2012Q1

REPORT INFORMATION
  Report Type: 
  Country: None (occurrence: None)
  Receive Date: 20120301
  Receipt Date: 20120229
  Transmission Date: 20120608
  Serious: Yes (Death)
  Sender: FDA-Public Use
  Company Number: PHHY2012HU017384

PATIENT
  Age: 65 Year
  Sex: Male

DRUGS (6)
  1. BERODUAL [Concomitant]
  2. VERAPAMIL [Concomitant]
  3. ONBREZ [Suspect]
     Indication: CHRONIC OBSTRUCTIVE PULMONARY DISEASE
     Dosage: UNK
     Dates: start: 20120201
  4. ANTICOAGULANTS [Concomitant]
  5. SPIRIVA [Concomitant]
  6. CORDARONE [Concomitant]

REACTIONS (3)
  - ARRHYTHMIA [None]
  - PALPITATIONS [None]
  - CARDIAC FAILURE [None]
